FAERS Safety Report 6604383-3 (Version None)
Quarter: 2010Q1

REPORT INFORMATION
  Report Type: 
  Country: None (occurrence: None)
  Receive Date: 20100226
  Receipt Date: 20090928
  Transmission Date: 20100710
  Serious: No
  Sender: FDA-Public Use
  Company Number: A0807296A

PATIENT

DRUGS (2)
  1. LAMICTAL CD [Suspect]
     Indication: BIPOLAR DISORDER
     Dosage: 100MGD PER DAY
     Route: 048
  2. UNKNOWN [Concomitant]

REACTIONS (2)
  - ADVERSE EVENT [None]
  - MEDICATION ERROR [None]
